FAERS Safety Report 4863940-5 (Version None)
Quarter: 2005Q4

REPORT INFORMATION
  Report Type: 
  Country: None (occurrence: None)
  Receive Date: 20051219
  Receipt Date: 20051219
  Transmission Date: 20060501
  Serious: Yes (Disabling)
  Sender: FDA-Public Use
  Company Number: None

PATIENT
  Sex: Male
  Weight: 151.77 kg

DRUGS (2)
  1. VANCOMYCIN [Suspect]
     Indication: ABSCESS LIMB
     Dosage: VANCOMYCIN  1.6GM  EVERY 24 HOURS  IV BOLUS
     Route: 040
     Dates: start: 20051111, end: 20051208
  2. VANCOMYCIN [Suspect]
     Indication: CELLULITIS
     Dosage: VANCOMYCIN  1.6GM  EVERY 24 HOURS  IV BOLUS
     Route: 040
     Dates: start: 20051111, end: 20051208

REACTIONS (3)
  - PRURITUS GENERALISED [None]
  - RASH ERYTHEMATOUS [None]
  - SCAB [None]
